FAERS Safety Report 8393814-7 (Version None)
Quarter: 2012Q2

REPORT INFORMATION
  Report Type: 
  Country: None (occurrence: None)
  Receive Date: 20120530
  Receipt Date: 20120525
  Transmission Date: 20120825
  Serious: No
  Sender: FDA-Public Use
  Company Number: US-PFIZER INC-2012127229

PATIENT
  Sex: Female

DRUGS (1)
  1. FLECTOR [Suspect]
     Indication: PAIN
     Dosage: UNK

REACTIONS (4)
  - MALAISE [None]
  - PAIN [None]
  - BURNING SENSATION [None]
  - SKIN IRRITATION [None]
